FAERS Safety Report 6342510-6 (Version None)
Quarter: 2009Q3

REPORT INFORMATION
  Report Type: 
  Country: None (occurrence: None)
  Receive Date: 20090908
  Receipt Date: 20060206
  Transmission Date: 20100115
  Serious: No
  Sender: FDA-Public Use
  Company Number: JP-ROCHE-419514

PATIENT
  Sex: Female
  Weight: 3.4 kg

DRUGS (1)
  1. TAMIFLU [Suspect]
     Dates: start: 20050211, end: 20050213

REACTIONS (1)
  - NORMAL NEWBORN [None]
